FAERS Safety Report 9458657 (Version 1)
Quarter: 2013Q3

REPORT INFORMATION
  Report Type: Spontaneous
  Country: US (occurrence: None)
  Receive Date: 20130813
  Receipt Date: 20130813
  Transmission Date: 20140515
  Serious: No
  Sender: FDA-Public Use
  Company Number: None

PATIENT
  Age: 61 Year
  Sex: Female

DRUGS (14)
  1. LETAIRIS 10MG GILEAD [Suspect]
     Indication: PULMONARY HYPERTENSION
     Route: 048
  2. REVATIO [Concomitant]
  3. IMURAN [Concomitant]
  4. LASIX [Concomitant]
  5. KTABS [Concomitant]
  6. NORCO [Concomitant]
  7. PEPCID [Concomitant]
  8. MUCINEX [Concomitant]
  9. LEVOTHROID [Concomitant]
  10. PRINIZIDE [Concomitant]
  11. SINGULAIR [Concomitant]
  12. PLAQUENIL [Concomitant]
  13. ADVAIR [Concomitant]
  14. LODINE [Concomitant]

REACTIONS (14)
  - Oedema peripheral [None]
  - Pyrexia [None]
  - Chills [None]
  - Nausea [None]
  - Diarrhoea [None]
  - Oedema peripheral [None]
  - Oedema peripheral [None]
  - Face oedema [None]
  - Sensation of heaviness [None]
  - Gait disturbance [None]
  - Orthopnoea [None]
  - Headache [None]
  - Dizziness [None]
  - Rash [None]
